FAERS Safety Report 5817107-4 (Version None)
Quarter: 2008Q3

REPORT INFORMATION
  Report Type: 
  Country: None (occurrence: None)
  Receive Date: 20080721
  Receipt Date: 20080617
  Transmission Date: 20090109
  Serious: Yes (Hospitalization)
  Sender: FDA-Public Use
  Company Number: DL2008271

PATIENT
  Age: 19 Year
  Sex: Female

DRUGS (3)
  1. MIFEPRISTONE TABLETS, 200 MG (DANCO LABS) [Suspect]
     Indication: ABORTION INDUCED
     Dosage: 200 MG, ORAL
     Route: 048
     Dates: start: 20080416
  2. MISOPROSTOL [Suspect]
     Dosage: 800 MCG, BUCCAL  TWICE
     Route: 002
     Dates: start: 20080417
  3. DOXYCYCLINE HCL [Concomitant]

REACTIONS (1)
  - ANAEMIA [None]
